FAERS Safety Report 9156715 (Version 1)
Quarter: 2013Q1

REPORT INFORMATION
  Report Type: Spontaneous
  Country: PR (occurrence: None)
  Receive Date: 20130308
  Receipt Date: 20130308
  Transmission Date: 20140127
  Serious: Yes (Life-Threatening)
  Sender: FDA-Public Use
  Company Number: None

PATIENT
  Age: 84 Year
  Sex: Male
  Weight: 82 kg

DRUGS (1)
  1. DOCETAXEL [Suspect]
     Indication: SQUAMOUS CELL CARCINOMA OF LUNG

REACTIONS (5)
  - Dizziness [None]
  - Hypotension [None]
  - Bradycardia [None]
  - Abdominal pain [None]
  - Unresponsive to stimuli [None]
